FAERS Safety Report 9045521 (Version 1)
Quarter: 2013Q1

REPORT INFORMATION
  Report Type: Report from Study
  Country: US (occurrence: US)
  Receive Date: 20130131
  Receipt Date: 20130131
  Transmission Date: 20140127
  Serious: Yes (Hospitalization, Other)
  Sender: FDA-Public Use
  Company Number: US-ABBOTT-13P-163-1040111-00

PATIENT
  Age: 63 None
  Sex: Male
  Weight: 75.82 kg

DRUGS (6)
  1. HUMIRA [Suspect]
     Indication: CROHN^S DISEASE
     Dates: start: 201007, end: 201209
  2. HUMIRA [Suspect]
     Dates: start: 201301
  3. QUESTRAN [Concomitant]
     Indication: CROHN^S DISEASE
     Dosage: 1 PACKET DAILY
  4. PREDNISONE [Concomitant]
     Indication: PRODUCT USED FOR UNKNOWN INDICATION
     Dosage: 20 MG DAILY
  5. B-12 [Concomitant]
     Indication: PRODUCT USED FOR UNKNOWN INDICATION
     Route: 050
  6. CHOLESTYRAMINE [Concomitant]
     Indication: PRODUCT USED FOR UNKNOWN INDICATION
     Dosage: UNKNOWN

REACTIONS (8)
  - Intervertebral disc protrusion [Recovered/Resolved]
  - Hernia [Recovered/Resolved]
  - Surgery [Recovered/Resolved]
  - Exploratory operation [Recovered/Resolved]
  - Loss of consciousness [Unknown]
  - Infection [Recovered/Resolved]
  - Pain [Unknown]
  - Vomiting [Unknown]
